FAERS Safety Report 25112026 (Version 1)
Quarter: 2025Q1

REPORT INFORMATION
  Report Type: Spontaneous
  Country: US (occurrence: US)
  Receive Date: 20250324
  Receipt Date: 20250324
  Transmission Date: 20250409
  Serious: Yes (Hospitalization, Other)
  Sender: HIKMA
  Company Number: HIKM2502596

PATIENT
  Sex: Male

DRUGS (2)
  1. FLUPHENAZINE DECANOATE [Suspect]
     Active Substance: FLUPHENAZINE DECANOATE
     Indication: Product used for unknown indication
     Route: 065
     Dates: start: 20250120
  2. FLUPHENAZINE DECANOATE [Suspect]
     Active Substance: FLUPHENAZINE DECANOATE
     Route: 065
     Dates: start: 20250206

REACTIONS (8)
  - Pain in extremity [Not Recovered/Not Resolved]
  - Condition aggravated [Not Recovered/Not Resolved]
  - Catatonia [Unknown]
  - Weight decreased [Unknown]
  - Feeding disorder [Unknown]
  - Fluid intake reduced [Unknown]
  - Decreased activity [Unknown]
  - Gait disturbance [Unknown]
